FAERS Safety Report 16464291 (Version 1)
Quarter: 2019Q3

REPORT INFORMATION
  Report Type: Spontaneous
  Country: US (occurrence: US)
  Receive Date: 20190620
  Receipt Date: 20190620
  Transmission Date: 20191004
  Serious: Yes (Life-Threatening, Disabling, Other)
  Sender: FDA-Public Use
  Company Number: None

PATIENT
  Age: 67 Year
  Sex: Female
  Weight: 90 kg

DRUGS (21)
  1. PREDNISON [Concomitant]
     Active Substance: PREDNISONE
  2. FUROSEMIDE. [Concomitant]
     Active Substance: FUROSEMIDE
  3. LASIX [Concomitant]
     Active Substance: FUROSEMIDE
  4. FOLIC ACID. [Concomitant]
     Active Substance: FOLIC ACID
  5. OTEZLA [Suspect]
     Active Substance: APREMILAST
     Indication: PSORIATIC ARTHROPATHY
     Dosage: ?          QUANTITY:90 TABLET(S);?
     Route: 048
     Dates: start: 20190513, end: 20190520
  6. LISINOPRIL. [Concomitant]
     Active Substance: LISINOPRIL
  7. CETIRIZINE [Concomitant]
     Active Substance: CETIRIZINE HYDROCHLORIDE
  8. BIOTIN [Concomitant]
     Active Substance: BIOTIN
  9. PROBIOTIC [Concomitant]
     Active Substance: PROBIOTICS NOS
  10. MELATONIN [Concomitant]
     Active Substance: MELATONIN
  11. PRED [Concomitant]
     Active Substance: PREDNISONE
  12. SWISH [Concomitant]
  13. METHOTREXATE. [Concomitant]
     Active Substance: METHOTREXATE
  14. ATENOLOL. [Concomitant]
     Active Substance: ATENOLOL
  15. ATORVASTATIN [Concomitant]
     Active Substance: ATORVASTATIN
  16. VITAMIN B12 [Concomitant]
     Active Substance: CYANOCOBALAMIN
  17. TROSPIUM SR [Concomitant]
  18. CALCIUM GLUCONATE. [Concomitant]
     Active Substance: CALCIUM GLUCONATE
  19. MAGIC MOUTH WASH [Concomitant]
     Active Substance: ALUMINUM HYDROXIDE\DIMETHICONE\DIPHENHYDRAMINE\LIDOCAINE\MAGNESIUM HYDROXIDE
  20. HYDROCHLOROTHIAZIDE. [Concomitant]
     Active Substance: HYDROCHLOROTHIAZIDE
  21. VITAMIN D3 [Concomitant]
     Active Substance: CHOLECALCIFEROL

REACTIONS (5)
  - Rash [None]
  - Nausea [None]
  - Peripheral swelling [None]
  - Drug dose titration not performed [None]
  - Joint swelling [None]

NARRATIVE: CASE EVENT DATE: 20190515
